FAERS Safety Report 18441235 (Version 1)
Quarter: 2020Q4

REPORT INFORMATION
  Report Type: Spontaneous
  Country: IE (occurrence: IE)
  Receive Date: 20201029
  Receipt Date: 20201029
  Transmission Date: 20210114
  Serious: Yes (Other)
  Sender: FDA-Public Use
  Company Number: IE-TEVA-2020-IE-1841890

PATIENT
  Sex: Female

DRUGS (1)
  1. BISOPROLOL (GENERIC) [Suspect]
     Active Substance: BISOPROLOL
     Route: 065

REACTIONS (2)
  - Alopecia [Not Recovered/Not Resolved]
  - Depressed mood [Not Recovered/Not Resolved]
